FAERS Safety Report 10688673 (Version 3)
Quarter: 2015Q3

REPORT INFORMATION
  Report Type: Report from Study
  Country: JP (occurrence: JP)
  Receive Date: 20150102
  Receipt Date: 20150911
  Transmission Date: 20151125
  Serious: Yes (Life-Threatening, Hospitalization)
  Sender: FDA-Public Use
  Company Number: JP-CELGENE-JPN-2014126032

PATIENT
  Age: 76 Year
  Sex: Male
  Weight: 63 kg

DRUGS (16)
  1. ZOSYN [Concomitant]
     Active Substance: PIPERACILLIN SODIUM\TAZOBACTAM SODIUM
     Indication: PRODUCT USED FOR UNKNOWN INDICATION
     Route: 065
     Dates: start: 20130218, end: 20130218
  2. VIDAZA [Suspect]
     Active Substance: AZACITIDINE
     Indication: MYELODYSPLASTIC SYNDROME
     Route: 041
     Dates: start: 20130212, end: 20130218
  3. VIDAZA [Suspect]
     Active Substance: AZACITIDINE
     Route: 041
     Dates: start: 20130426, end: 20130502
  4. GRANISETRON [Concomitant]
     Active Substance: GRANISETRON
     Route: 065
     Dates: start: 20130315, end: 20130321
  5. CRAVIT [Concomitant]
     Active Substance: LEVOFLOXACIN
     Indication: PRODUCT USED FOR UNKNOWN INDICATION
     Route: 065
     Dates: start: 20130218, end: 20130224
  6. VIDAZA [Suspect]
     Active Substance: AZACITIDINE
     Route: 041
     Dates: start: 20130315, end: 20130321
  7. LOXOPROFEN [Concomitant]
     Active Substance: LOXOPROFEN
     Indication: PRODUCT USED FOR UNKNOWN INDICATION
     Route: 065
     Dates: start: 20130217, end: 20130218
  8. MAGMITT [Concomitant]
     Active Substance: MAGNESIUM OXIDE
     Indication: PRODUCT USED FOR UNKNOWN INDICATION
     Route: 065
     Dates: start: 20130217, end: 20130223
  9. VIDAZA [Suspect]
     Active Substance: AZACITIDINE
     Route: 041
     Dates: start: 20130703, end: 20130709
  10. GRANISETRON [Concomitant]
     Active Substance: GRANISETRON
     Indication: PRODUCT USED FOR UNKNOWN INDICATION
     Route: 065
     Dates: start: 20130212, end: 20130218
  11. SENNOSIDE [Concomitant]
     Active Substance: SENNOSIDES
     Indication: PRODUCT USED FOR UNKNOWN INDICATION
     Route: 065
     Dates: start: 20130216, end: 20130217
  12. CRAVIT [Concomitant]
     Active Substance: LEVOFLOXACIN
     Route: 065
     Dates: start: 20130725, end: 20130801
  13. MAGMITT [Concomitant]
     Active Substance: MAGNESIUM OXIDE
     Route: 065
     Dates: start: 20130317, end: 20130320
  14. GRANISETRON [Concomitant]
     Active Substance: GRANISETRON
     Route: 065
     Dates: start: 20130426, end: 20130502
  15. GRANISETRON [Concomitant]
     Active Substance: GRANISETRON
     Route: 065
     Dates: start: 20130703, end: 20130709
  16. CALONAL [Concomitant]
     Active Substance: ACETAMINOPHEN
     Indication: PRODUCT USED FOR UNKNOWN INDICATION
     Route: 065
     Dates: start: 20130725, end: 20130801

REACTIONS (7)
  - Platelet count decreased [Not Recovered/Not Resolved]
  - Neutrophil count decreased [Not Recovered/Not Resolved]
  - White blood cell count decreased [Not Recovered/Not Resolved]
  - Pyrexia [Recovered/Resolved]
  - Pyrexia [Recovering/Resolving]
  - Chalazion [Recovering/Resolving]
  - Constipation [Recovered/Resolved]

NARRATIVE: CASE EVENT DATE: 20130215
